APPROVED DRUG PRODUCT: CARTEOLOL HYDROCHLORIDE
Active Ingredient: CARTEOLOL HYDROCHLORIDE
Strength: 1%
Dosage Form/Route: SOLUTION/DROPS;OPHTHALMIC
Application: A076097 | Product #001
Applicant: APOTEX INC
Approved: Feb 6, 2002 | RLD: No | RS: No | Type: DISCN